FAERS Safety Report 5135472-0 (Version None)
Quarter: 2006Q4

REPORT INFORMATION
  Report Type: 
  Country: None (occurrence: None)
  Receive Date: 20061026
  Receipt Date: 20060824
  Transmission Date: 20070319
  Serious: Yes (Disabling, Other)
  Sender: FDA-Public Use
  Company Number: US-BAYER-200615241BWH

PATIENT
  Age: 64 Year
  Sex: Male

DRUGS (4)
  1. LEVITRA [Suspect]
     Indication: ERECTILE DYSFUNCTION
     Route: 048
  2. CIALIS [Suspect]
     Indication: ERECTILE DYSFUNCTION
  3. FLOMAX [Concomitant]
  4. ASPIRIN [Concomitant]

REACTIONS (3)
  - CEREBRAL ATROPHY [None]
  - DEAFNESS NEUROSENSORY [None]
  - THERAPY NON-RESPONDER [None]
